FAERS Safety Report 6310948-9 (Version None)
Quarter: 2009Q3

REPORT INFORMATION
  Report Type: 
  Country: None (occurrence: None)
  Receive Date: 20090817
  Receipt Date: 20090813
  Transmission Date: 20100115
  Serious: Yes (Hospitalization)
  Sender: FDA-Public Use
  Company Number: US-BIOGENIDEC-2008BI027404

PATIENT
  Age: 66 Year
  Sex: Female

DRUGS (1)
  1. TYSABRI [Suspect]
     Indication: MULTIPLE SCLEROSIS
     Route: 042
     Dates: start: 20080701, end: 20080902

REACTIONS (4)
  - FACIAL PAIN [None]
  - HEMICEPHALALGIA [None]
  - MULTIPLE SCLEROSIS RELAPSE [None]
  - XANTHOPSIA [None]
